FAERS Safety Report 9936844 (Version 1)
Quarter: 2014Q1

REPORT INFORMATION
  Report Type: Spontaneous
  Country: US (occurrence: None)
  Receive Date: 20140114
  Receipt Date: 20140114
  Transmission Date: 20141002
  Serious: Yes (Other)
  Sender: FDA-Public Use
  Company Number: ALCN2013US005609

PATIENT
  Age: 69 Year
  Sex: Male
  Weight: 81.6 kg

DRUGS (1)
  1. SIMBRINZA [Suspect]
     Dosage: UNK, BID, BOTH EYES - OPH
     Route: 047
     Dates: start: 20130610, end: 20130930

REACTIONS (1)
  - Fatigue [None]
